FAERS Safety Report 5383707-1 (Version None)
Quarter: 2007Q3

REPORT INFORMATION
  Report Type: 
  Country: None (occurrence: None)
  Receive Date: 20070706
  Receipt Date: 20070625
  Transmission Date: 20080115
  Serious: Yes (Other)
  Sender: FDA-Public Use
  Company Number: 23385K07USA

PATIENT
  Age: 36 Year
  Sex: Male

DRUGS (2)
  1. REBIF [Suspect]
     Indication: MULTIPLE SCLEROSIS
     Dosage: 44 MCG, 3 IN 1 WEEKS, SUBCUTANEOUS
     Route: 058
     Dates: start: 20050822
  2. IMIPRAMINE (IMIPRAMINE /00053901/) [Concomitant]

REACTIONS (4)
  - ALTERED VISUAL DEPTH PERCEPTION [None]
  - BLINDNESS [None]
  - RETINITIS PIGMENTOSA [None]
  - VISUAL ACUITY REDUCED [None]
